FAERS Safety Report 8313004-3 (Version None)
Quarter: 2012Q2

REPORT INFORMATION
  Report Type: 
  Country: None (occurrence: None)
  Receive Date: 20120424
  Receipt Date: 20120412
  Transmission Date: 20120825
  Serious: Yes (Hospitalization)
  Sender: FDA-Public Use
  Company Number: 1261136

PATIENT
  Age: 44 Year
  Sex: Female

DRUGS (2)
  1. PACLITAXEL [Suspect]
     Indication: CHEMOTHERAPY
     Dosage: 118 MG, 1 IN 1 ACCORDING TO CYCLE, INTRAVENOUS (NOT OTHERWISE SPECIFIED)
     Route: 042
     Dates: start: 20120210, end: 20120308
  2. DOCETAXEL [Suspect]
     Indication: CHEMOTHERAPY
     Dosage: 155 MG, 1 IN 1 SINGLE ADMINISTRATION, INTRAVENOUS (NOT OTHERWISE SPECIFIED)
     Route: 042
     Dates: start: 20120120, end: 20120120

REACTIONS (8)
  - DYSURIA [None]
  - MUSCLE SPASMS [None]
  - DRUG TOLERANCE DECREASED [None]
  - PARAESTHESIA [None]
  - MYALGIA [None]
  - CHEMICAL INJURY [None]
  - BACK PAIN [None]
  - NEURALGIA [None]
